FAERS Safety Report 6412725-7 (Version None)
Quarter: 2009Q4

REPORT INFORMATION
  Report Type: 
  Country: None (occurrence: None)
  Receive Date: 20091023
  Receipt Date: 20091020
  Transmission Date: 20100525
  Serious: Yes (Death, Other)
  Sender: FDA-Public Use
  Company Number: PHEH2009US10996

PATIENT
  Sex: Female
  Weight: 65.9 kg

DRUGS (6)
  1. EXJADE [Suspect]
     Indication: IRON OVERLOAD
     Dosage: 500 MG, QID
     Route: 048
     Dates: start: 20070403
  2. EXJADE [Suspect]
     Indication: MYELODYSPLASTIC SYNDROME
  3. DOXYCYCLINE [Concomitant]
     Indication: ACNE
     Dosage: 100 MG, QD
     Route: 048
  4. LASIX [Concomitant]
     Indication: CARDIAC FAILURE CONGESTIVE
     Dosage: 40 MG, QD
     Route: 048
  5. DEXIDRINE [Concomitant]
     Indication: FATIGUE
     Dosage: 15 MG, QD
     Route: 048
  6. POTASSIUM CHLORIDE [Concomitant]
     Indication: MINERAL SUPPLEMENTATION
     Dosage: 20 MEQ, QD

REACTIONS (3)
  - ACUTE LEUKAEMIA [None]
  - CARDIAC FAILURE CONGESTIVE [None]
  - MALIGNANT NEOPLASM PROGRESSION [None]
